FAERS Safety Report 14031803 (Version 2)
Quarter: 2017Q4

REPORT INFORMATION
  Report Type: Spontaneous
  Country: HR (occurrence: HR)
  Receive Date: 20171002
  Receipt Date: 20171002
  Transmission Date: 20180321
  Serious: Yes (Other)
  Sender: FDA-Public Use
  Company Number: HR-TEVA-808503ACC

PATIENT
  Sex: Female

DRUGS (5)
  1. KAPECITABINE [Suspect]
     Active Substance: CAPECITABINE
     Indication: BREAST CANCER METASTATIC
     Dosage: 4 UNK, CYCLIC
     Route: 065
  2. AVOMIT (LETROZOLE) [Suspect]
     Active Substance: LETROZOLE
     Indication: BREAST CANCER METASTATIC
     Route: 065
     Dates: start: 200901, end: 201501
  3. FULVESTRANT. [Suspect]
     Active Substance: FULVESTRANT
     Indication: BREAST CANCER METASTATIC
     Route: 065
     Dates: start: 201503, end: 201611
  4. MITOMYCIN. [Suspect]
     Active Substance: MITOMYCIN
     Indication: BREAST CANCER METASTATIC
     Dosage: 4 UNK, CYCLIC
     Route: 065
  5. TAMOXIFEN [Suspect]
     Active Substance: TAMOXIFEN
     Indication: BREAST CANCER METASTATIC
     Route: 065
     Dates: start: 201612

REACTIONS (2)
  - Malignant neoplasm progression [Unknown]
  - Breast cancer metastatic [Unknown]
